FAERS Safety Report 23864574 (Version 4)
Quarter: 2024Q4

REPORT INFORMATION
  Report Type: Spontaneous
  Country: US (occurrence: US)
  Receive Date: 20240516
  Receipt Date: 20241119
  Transmission Date: 20250114
  Serious: No
  Sender: SANOFI AVENTIS
  Company Number: US-SA-SAC20240511000126

PATIENT
  Age: 15 Year
  Sex: Male

DRUGS (4)
  1. DUPIXENT [Suspect]
     Active Substance: DUPILUMAB
     Indication: Eosinophilic oesophagitis
     Dosage: 300 MG, QW
     Route: 058
     Dates: start: 20240330
  2. DUPIXENT [Suspect]
     Active Substance: DUPILUMAB
     Indication: Eczema
  3. CITRUCEL [Concomitant]
     Active Substance: METHYLCELLULOSE (4000 CPS)
  4. PEPPERMINT OIL [Concomitant]
     Active Substance: PEPPERMINT OIL
     Dosage: UNK

REACTIONS (12)
  - Muscular weakness [Unknown]
  - Injection site mass [Unknown]
  - Injection site warmth [Unknown]
  - Injection site pain [Unknown]
  - Injection site swelling [Unknown]
  - Injection site pruritus [Unknown]
  - Injection site erythema [Unknown]
  - Injection site irritation [Unknown]
  - Eosinophilic oesophagitis [Recovered/Resolved]
  - Burn oesophageal [Recovered/Resolved]
  - Oesophageal irritation [Recovered/Resolved]
  - Dysphagia [Recovered/Resolved]

NARRATIVE: CASE EVENT DATE: 20240101
